FAERS Safety Report 7731514-4 (Version None)
Quarter: 2011Q3

REPORT INFORMATION
  Report Type: 
  Country: None (occurrence: None)
  Receive Date: 20110906
  Receipt Date: 20110608
  Transmission Date: 20111222
  Serious: No
  Sender: FDA-Public Use
  Company Number: US-AMGEN-USASP2011029595

PATIENT
  Age: 62 Year
  Sex: Female

DRUGS (11)
  1. VITAMIN D [Concomitant]
  2. PROLIA [Suspect]
     Dosage: 60 MG, Q6MO
     Route: 058
     Dates: start: 20110510
  3. ACTIGALL [Concomitant]
  4. PROPRANOLOL [Concomitant]
  5. COQ10 [Concomitant]
  6. CENTRUM SILVER                     /01292501/ [Concomitant]
  7. VITAMIN B12                        /00056201/ [Concomitant]
  8. FERROUS SULFATE TAB [Concomitant]
  9. SYNTHROID [Concomitant]
  10. ESTRING [Concomitant]
  11. OSCAL                              /00108001/ [Concomitant]

REACTIONS (3)
  - DERMATITIS CONTACT [None]
  - MALAISE [None]
  - ENDOSCOPY [None]
